FAERS Safety Report 8419333 (Version 4)
Quarter: 2012Q4

REPORT INFORMATION
  Report Type: 
  Country: JP (occurrence: JP)
  Receive Date: 20120221
  Receipt Date: 20121123
  Transmission Date: 20130627
  Serious: Yes (Other)
  Sender: FDA-Public Use
  Company Number: PHHY2012JP011463

PATIENT
  Sex: Female
  Weight: 56 kg

DRUGS (29)
  1. CLOZARIL [Suspect]
     Indication: SCHIZOPHRENIA, PARANOID TYPE
     Dosage: 12.5 mg
     Route: 048
     Dates: start: 20110614, end: 20110614
  2. CLOZARIL [Suspect]
     Dosage: 25 mg
     Route: 048
     Dates: start: 20110615, end: 20110620
  3. CLOZARIL [Suspect]
     Dosage: 50 mg
     Route: 048
     Dates: start: 20110621, end: 20110623
  4. CLOZARIL [Suspect]
     Dosage: 75 mg
     Route: 048
     Dates: start: 20110624, end: 20110626
  5. CLOZARIL [Suspect]
     Dosage: 100 mg
     Route: 048
     Dates: start: 20110627, end: 20110630
  6. CLOZARIL [Suspect]
     Dosage: 125 mg
     Route: 048
     Dates: start: 20110701, end: 20110703
  7. CLOZARIL [Suspect]
     Dosage: 150 mg
     Route: 048
     Dates: start: 20110704, end: 20110706
  8. CLOZARIL [Suspect]
     Dosage: 175 mg
     Route: 048
     Dates: start: 20110707, end: 20110711
  9. CLOZARIL [Suspect]
     Dosage: 200 mg
     Route: 048
     Dates: start: 20110712, end: 20110716
  10. CLOZARIL [Suspect]
     Dosage: 300 mg
     Route: 048
     Dates: start: 20110717, end: 20110721
  11. CLOZARIL [Suspect]
     Dosage: 400 mg
     Route: 048
     Dates: start: 20110722, end: 20110726
  12. CLOZARIL [Suspect]
     Dosage: 500 mg
     Route: 048
     Dates: start: 20110727, end: 20110731
  13. CLOZARIL [Suspect]
     Dosage: 600 mg
     Route: 048
     Dates: start: 20110801, end: 20110801
  14. CLOZARIL [Suspect]
     Dosage: 500 mg
     Route: 048
     Dates: start: 20110802, end: 20110907
  15. CLOZARIL [Suspect]
     Dosage: 400 mg
     Route: 048
     Dates: start: 20110908, end: 20110928
  16. CLOZARIL [Suspect]
     Dosage: 350 mg
     Route: 048
     Dates: start: 20110929, end: 20111019
  17. CLOZARIL [Suspect]
     Dosage: 300 mg
     Route: 048
     Dates: start: 20111020, end: 20111109
  18. CLOZARIL [Suspect]
     Dosage: 250 mg
     Route: 048
     Dates: start: 20111110, end: 20111116
  19. CLOZARIL [Suspect]
     Dosage: 200 mg
     Route: 048
     Dates: start: 20111117, end: 20111123
  20. CLOZARIL [Suspect]
     Dosage: 250 mg
     Route: 048
     Dates: start: 20111124, end: 20111214
  21. CLOZARIL [Suspect]
     Dosage: 300 mg
     Route: 048
     Dates: start: 20111215
  22. RISPERIDONE [Suspect]
     Indication: SCHIZOPHRENIA, PARANOID TYPE
     Dosage: 12 mg
     Route: 048
     Dates: start: 20110614, end: 20110615
  23. RISPERIDONE [Suspect]
     Dosage: 9 mg, UNK
     Route: 048
     Dates: start: 20110616, end: 20110621
  24. RISPERIDONE [Suspect]
     Dosage: 6 mg, UNK
     Route: 048
     Dates: start: 20110622, end: 20110623
  25. RISPERIDONE [Suspect]
     Dosage: 3 mg, UNK
     Route: 048
     Dates: start: 20110624, end: 20110706
  26. AKINETON [Suspect]
     Indication: SCHIZOPHRENIA, PARANOID TYPE
     Dosage: 6 mg, UNK
     Route: 048
     Dates: start: 20110614, end: 20110622
  27. AKINETON [Suspect]
     Dosage: 2 mg, UNK
     Route: 048
     Dates: start: 20110623, end: 20110627
  28. AKINETON [Suspect]
     Dosage: 1 mg, UNK
     Route: 048
     Dates: start: 20110628, end: 20110716
  29. LACTOMIN [Concomitant]
     Dosage: 3000 mg, UNK
     Route: 048
     Dates: start: 20110710, end: 20110710

REACTIONS (8)
  - Hypotension [Recovered/Resolved]
  - Orthostatic hypotension [Recovered/Resolved]
  - Presyncope [Unknown]
  - Tachycardia [Not Recovered/Not Resolved]
  - Heart rate increased [Not Recovered/Not Resolved]
  - Eosinophil count increased [Recovered/Resolved]
  - Red blood cell count decreased [Unknown]
  - Lymphocyte count decreased [Unknown]
